FAERS Safety Report 21984211 (Version 2)
Quarter: 2023Q1

REPORT INFORMATION
  Report Type: Report from Study
  Country: US (occurrence: US)
  Receive Date: 20230213
  Receipt Date: 20230217
  Transmission Date: 20230418
  Serious: Yes (Hospitalization, Other)
  Sender: FDA-Public Use
  Company Number: US-BAUSCH-BL-2021-022313

PATIENT
  Age: 63 Year
  Sex: Male
  Weight: 104.42 kg

DRUGS (4)
  1. XIFAXAN [Suspect]
     Active Substance: RIFAXIMIN
     Indication: Ammonia increased
     Route: 048
     Dates: start: 201810, end: 201810
  2. XIFAXAN [Suspect]
     Active Substance: RIFAXIMIN
     Indication: Prophylaxis
     Route: 048
  3. XIFAXAN [Suspect]
     Active Substance: RIFAXIMIN
     Indication: Hepatic cirrhosis
     Route: 048
     Dates: start: 202302
  4. LACTULOSE [Concomitant]
     Active Substance: LACTULOSE
     Indication: Ammonia increased

REACTIONS (7)
  - Generalised oedema [Unknown]
  - Hepatic steatosis [Unknown]
  - Condition aggravated [Unknown]
  - Ammonia increased [Unknown]
  - Anaemia [Unknown]
  - Confusional state [Unknown]
  - Product use issue [Unknown]
